FAERS Safety Report 11835321 (Version 2)
Quarter: 2016Q1

REPORT INFORMATION
  Report Type: Report from Study
  Country: US (occurrence: US)
  Receive Date: 20151215
  Receipt Date: 20160212
  Transmission Date: 20160525
  Serious: Yes (Other)
  Sender: FDA-Public Use
  Company Number: US-BEH-2015056709

PATIENT
  Sex: Male
  Weight: 114 kg

DRUGS (1)
  1. ZEMAIRA [Suspect]
     Active Substance: .ALPHA.1-PROTEINASE INHIBITOR HUMAN
     Indication: ALPHA-1 ANTI-TRYPSIN DEFICIENCY
     Route: 042
     Dates: start: 20160127, end: 20160127

REACTIONS (4)
  - Pneumonia [Unknown]
  - Pain [Unknown]
  - Paracentesis [Not Recovered/Not Resolved]
  - Ascites [Unknown]
